FAERS Safety Report 24553048 (Version 2)
Quarter: 2024Q4

REPORT INFORMATION
  Report Type: Report from Study
  Country: JP (occurrence: JP)
  Receive Date: 20241027
  Receipt Date: 20241106
  Transmission Date: 20250115
  Serious: Yes (Hospitalization)
  Sender: UCB
  Company Number: JP-UCBJ-CD202410173UCBPHAPROD

PATIENT
  Sex: Female

DRUGS (1)
  1. ROZANOLIXIZUMAB [Suspect]
     Active Substance: ROZANOLIXIZUMAB
     Indication: Myasthenia gravis
     Dosage: 280 MILLIGRAM, WEEKLY (QW)
     Route: 058
     Dates: start: 20240408

REACTIONS (2)
  - Ulna fracture [Not Recovered/Not Resolved]
  - Fall [Unknown]
